FAERS Safety Report 20318565 (Version 1)
Quarter: 2022Q1

REPORT INFORMATION
  Report Type: Spontaneous
  Country: US (occurrence: None)
  Receive Date: 20220110
  Receipt Date: 20220110
  Transmission Date: 20220423
  Serious: Yes (Hospitalization)
  Sender: FDA-Public Use
  Company Number: None

PATIENT
  Age: 53 Year
  Sex: Male

DRUGS (2)
  1. ICATIBANT [Suspect]
     Active Substance: ICATIBANT ACETATE
     Indication: Product used for unknown indication
     Dosage: OTHER FREQUENCY : 30 MG/3ML;  INJECT 30 MG (1 SYRINGE) SUBCUTANEOUSLY FOR EMERGENCY USE (HAE ATTACKS
     Route: 058
     Dates: start: 20200114
  2. TAKHZYRO [Concomitant]

REACTIONS (1)
  - Hereditary angioedema [None]

NARRATIVE: CASE EVENT DATE: 20220110
